FAERS Safety Report 8508485-6 (Version None)
Quarter: 2012Q3

REPORT INFORMATION
  Report Type: 
  Country: None (occurrence: None)
  Receive Date: 20120713
  Receipt Date: 20120702
  Transmission Date: 20120928
  Serious: Yes (Other)
  Sender: FDA-Public Use
  Company Number: BR-AMGEN-BRASP2012041902

PATIENT
  Age: 76 Year
  Sex: Female
  Weight: 70 kg

DRUGS (6)
  1. ENBREL [Suspect]
     Indication: RHEUMATOID ARTHRITIS
     Dosage: 50 MG, ONCE WEEKLY
     Route: 058
  2. CODEINE SUL TAB [Concomitant]
     Dosage: UNK
  3. DIGESAN                            /00576701/ [Concomitant]
     Dosage: UNK
  4. OMEPRAZOLE [Concomitant]
     Indication: GASTRIC DISORDER
     Dosage: UNK
  5. CORTICORTEN [Concomitant]
     Dosage: UNK
  6. CODEINE PHOSPHATE [Concomitant]
     Dosage: UNK

REACTIONS (12)
  - CATARACT [None]
  - SWELLING FACE [None]
  - HEADACHE [None]
  - THROAT CANCER [None]
  - OROPHARYNGEAL PAIN [None]
  - DYSPHAGIA [None]
  - GAIT DISTURBANCE [None]
  - MOUTH HAEMORRHAGE [None]
  - LOCAL SWELLING [None]
  - BACK PAIN [None]
  - OEDEMA MOUTH [None]
  - NECK PAIN [None]
